FAERS Safety Report 7395058-4 (Version None)
Quarter: 2011Q2

REPORT INFORMATION
  Report Type: 
  Country: None (occurrence: None)
  Receive Date: 20110405
  Receipt Date: 20110331
  Transmission Date: 20111010
  Serious: Yes (Other)
  Sender: FDA-Public Use
  Company Number: GB-MERCK-1104GBR00005

PATIENT
  Age: 59 Year
  Sex: Male
  Weight: 102 kg

DRUGS (5)
  1. JANUVIA [Suspect]
     Route: 048
     Dates: start: 20101202, end: 20101230
  2. CANDESARTAN [Concomitant]
     Indication: HYPERTENSION
     Route: 048
     Dates: start: 20050101
  3. METFORMIN [Concomitant]
     Route: 048
     Dates: start: 20000101
  4. SIMVASTATIN [Concomitant]
     Route: 048
     Dates: start: 20050101
  5. SOTALOL HYDROCHLORIDE [Concomitant]
     Route: 048
     Dates: start: 20050101

REACTIONS (1)
  - VASCULITIS [None]
